FAERS Safety Report 9955717 (Version 1)
Quarter: 2014Q1

REPORT INFORMATION
  Report Type: Report from Study
  Country: US (occurrence: US)
  Receive Date: 20140304
  Receipt Date: 20140304
  Transmission Date: 20141002
  Serious: No
  Sender: FDA-Public Use
  Company Number: US-ABBVIE-13P-163-1086367-00

PATIENT
  Age: 63 Year
  Sex: Female
  Weight: 79.45 kg

DRUGS (8)
  1. HYDROCODONE [Concomitant]
     Indication: PAIN
  2. LEVOTHYROXINE [Concomitant]
     Indication: HYPOTHYROIDISM
  3. MULTIVITAMIN [Concomitant]
     Indication: VITAMIN SUPPLEMENTATION
  4. PRILOSEC [Concomitant]
     Indication: GASTROOESOPHAGEAL REFLUX DISEASE
  5. REQUIP [Concomitant]
     Indication: MUSCLE SPASMS
  6. VITAMIN B 12 [Concomitant]
     Indication: VITAMIN B12 DEFICIENCY
  7. HUMIRA [Suspect]
     Indication: CROHN^S DISEASE
     Dosage: 160 MILLIGRAM LOADING DOSE
     Dates: start: 20130427
  8. CITALOPRAM [Concomitant]
     Indication: DEPRESSION

REACTIONS (3)
  - Injection site papule [Recovered/Resolved]
  - Injection site pain [Recovered/Resolved]
  - Injection site bruising [Recovered/Resolved]
